FAERS Safety Report 23917704 (Version 3)
Quarter: 2024Q2

REPORT INFORMATION
  Report Type: Spontaneous
  Country: US (occurrence: US)
  Receive Date: 20240530
  Receipt Date: 20240620
  Transmission Date: 20240716
  Serious: Yes (Death, Hospitalization, Other)
  Sender: FDA-Public Use
  Company Number: US-002147023-NVSC2024US113191

PATIENT
  Age: 66 Year
  Sex: Male

DRUGS (1)
  1. PLUVICTO [Suspect]
     Active Substance: LUTETIUM LU-177 VIPIVOTIDE TETRAXETAN
     Indication: Infusion
     Dosage: 200 MCI (IV PUMP)
     Route: 065
     Dates: start: 20240417

REACTIONS (7)
  - Death [Fatal]
  - General physical health deterioration [Fatal]
  - Haematuria [Unknown]
  - Subdural haematoma [Unknown]
  - Mental status changes [Unknown]
  - Pain [Unknown]
  - Agitation [Unknown]

NARRATIVE: CASE EVENT DATE: 20240601
